FAERS Safety Report 4904673-6 (Version None)
Quarter: 2006Q1

REPORT INFORMATION
  Report Type: 
  Country: None (occurrence: None)
  Receive Date: 20060208
  Receipt Date: 20051208
  Transmission Date: 20060701
  Serious: No
  Sender: FDA-Public Use
  Company Number: US-GLAXOSMITHKLINE-A0586140A

PATIENT
  Sex: Female

DRUGS (3)
  1. PAXIL [Suspect]
     Indication: ANXIETY
     Dosage: 40MG PER DAY
     Route: 048
  2. PAXIL CR [Suspect]
     Indication: ANXIETY
     Route: 048
  3. XANAX [Concomitant]
     Indication: PANIC ATTACK
     Dosage: .5MG AS REQUIRED
     Route: 065

REACTIONS (2)
  - ANXIETY [None]
  - PERFORMANCE STATUS DECREASED [None]
